FAERS Safety Report 7825132-7 (Version None)
Quarter: 2011Q4

REPORT INFORMATION
  Report Type: 
  Country: None (occurrence: None)
  Receive Date: 20111019
  Receipt Date: 20111005
  Transmission Date: 20120403
  Serious: Yes (Hospitalization, Other)
  Sender: FDA-Public Use
  Company Number: KR-ELI_LILLY_AND_COMPANY-KR201103005224

PATIENT

DRUGS (6)
  1. LEXAPRO [Concomitant]
  2. CISPLATIN [Concomitant]
  3. SALINE [Concomitant]
  4. GEMZAR [Suspect]
     Indication: OVARIAN CANCER
     Dosage: 1440 MG, UNKNOWN
     Route: 042
  5. RANITIDINE [Concomitant]
  6. CARBOPLATIN [Concomitant]

REACTIONS (2)
  - SHOCK [None]
  - HYPERSENSITIVITY [None]
